FAERS Safety Report 8383775-9 (Version None)
Quarter: 2012Q1

REPORT INFORMATION
  Report Type: 
  Country: None (occurrence: None)
  Receive Date: 20120323
  Receipt Date: 20110420
  Transmission Date: 20120608
  Serious: Yes (Other)
  Sender: FDA-Public Use
  Company Number: 163-21880-11030583

PATIENT
  Age: 66 Year
  Sex: Female

DRUGS (2)
  1. REVLIMID [Suspect]
  2. REVLIMID [Suspect]
     Indication: MULTIPLE MYELOMA
     Dosage: 10 MG, DAILY X 21 DAYS/OFF 7 DAYS, PO
     Route: 048
     Dates: start: 20080603

REACTIONS (5)
  - PARAESTHESIA [None]
  - PAIN IN EXTREMITY [None]
  - OEDEMA [None]
  - NEUROPATHY PERIPHERAL [None]
  - HYPOAESTHESIA [None]
